FAERS Safety Report 6980090-2 (Version None)
Quarter: 2010Q3

REPORT INFORMATION
  Report Type: 
  Country: None (occurrence: None)
  Receive Date: 20100914
  Receipt Date: 20100827
  Transmission Date: 20110219
  Serious: No
  Sender: FDA-Public Use
  Company Number: US-B.I. PHARMACEUTICALS,INC./RIDGEFIELD-2010-BP-09804BP

PATIENT
  Sex: Male

DRUGS (3)
  1. FLOMAX [Suspect]
     Dosage: 0.4 MG
  2. FLOMAX [Suspect]
     Dosage: 0.8 MG
  3. ENOXAPARIN SODIUM [Concomitant]
     Indication: HIP ARTHROPLASTY

REACTIONS (3)
  - DEHYDRATION [None]
  - DYSURIA [None]
  - SYNCOPE [None]
